FAERS Safety Report 5343851-1 (Version None)
Quarter: 2007Q2

REPORT INFORMATION
  Report Type: 
  Country: None (occurrence: None)
  Receive Date: 20070531
  Receipt Date: 20070531
  Transmission Date: 20071010
  Serious: Yes (Other)
  Sender: FDA-Public Use
  Company Number: None

PATIENT
  Age: 66 Year
  Sex: Female
  Weight: 68.0396 kg

DRUGS (1)
  1. CLINDAMYCIN  300 MG CAPSRAN  RX693 [Suspect]
     Indication: RASH
     Dosage: 300 MG 6 HOURS PO
     Route: 048
     Dates: start: 20070519, end: 20070525

REACTIONS (1)
  - RASH PRURITIC [None]
